FAERS Safety Report 26162061 (Version 1)
Quarter: 2025Q4

REPORT INFORMATION
  Report Type: Spontaneous
  Country: US (occurrence: US)
  Receive Date: 20251216
  Receipt Date: 20251216
  Transmission Date: 20260117
  Serious: No
  Sender: CELLTRION
  Company Number: US-CELLTRION INC.-2025US006207

PATIENT

DRUGS (3)
  1. RITUXIMAB [Suspect]
     Active Substance: RITUXIMAB
     Indication: Pachymeningitis
     Dosage: 1000 MG (DAY 1)
  2. RITUXIMAB [Suspect]
     Active Substance: RITUXIMAB
     Dosage: 1000 MG (DAY 15)
  3. RITUXIMAB [Suspect]
     Active Substance: RITUXIMAB
     Dosage: SUBSEQUENT DOSES ADMINISTERED EVERY SIX MONTHS AS MAINTENANCE THERAPY

REACTIONS (1)
  - Drug effective for unapproved indication [Unknown]
